FAERS Safety Report 9312271 (Version 2)
Quarter: 2013Q3

REPORT INFORMATION
  Report Type: Report from Study
  Country: AU (occurrence: AU)
  Receive Date: 20130528
  Receipt Date: 20130721
  Transmission Date: 20140515
  Serious: Yes (Death, Hospitalization, Other)
  Sender: FDA-Public Use
  Company Number: PHHY2013AU053512

PATIENT
  Age: 87 Year
  Sex: Male

DRUGS (13)
  1. ACLASTA [Suspect]
     Dosage: 5 MG
     Route: 042
     Dates: start: 20120712
  2. CALCIUM CARBONATE [Concomitant]
     Dosage: 1.5 G, (600 MG ELEMENTAL CALCIUM)
  3. CHOLECALCIFEROL [Concomitant]
     Dosage: 25 UG, UNK
  4. DIGOXIN [Concomitant]
     Dosage: 62.5 UG, UNK
  5. ESCITALOPRAM [Concomitant]
     Dosage: 10 MG, UNK
  6. FRUSEMIDE [Concomitant]
     Dosage: 20 MG, UNK
  7. GLYCOPYRROLATE [Concomitant]
     Dosage: 200 UG/1ML
  8. HALOPERIDOL [Concomitant]
     Dosage: 5 MG/1ML
  9. MIDAZOLAM [Concomitant]
     Dosage: 5 MG/1ML
  10. MORPHINE SULPHATE [Concomitant]
     Dosage: 5 MG/1ML
  11. ONDANSETRAN [Concomitant]
     Dosage: 4 MG, UNK
  12. PANTOPRAZOLE [Concomitant]
     Dosage: 40 MG, UNK
  13. PARACETAMOL [Concomitant]
     Dosage: 665 MG, UNK

REACTIONS (12)
  - Oxygen saturation decreased [Unknown]
  - Blood pressure decreased [Unknown]
  - Urine output decreased [Unknown]
  - Cachexia [Unknown]
  - Body temperature decreased [Unknown]
  - Death [Fatal]
  - Coma scale abnormal [Unknown]
  - Speech disorder [Unknown]
  - Urosepsis [Unknown]
  - Somnolence [Unknown]
  - General physical health deterioration [Unknown]
  - Suicidal ideation [Unknown]
